FAERS Safety Report 10470636 (Version 2)
Quarter: 2014Q4

REPORT INFORMATION
  Report Type: Spontaneous
  Country: US (occurrence: US)
  Receive Date: 20140923
  Receipt Date: 20141031
  Transmission Date: 20150528
  Serious: Yes (Hospitalization)
  Sender: FDA-Public Use
  Company Number: US-INCYTE CORPORATION-2014IN002641

PATIENT
  Age: 82 Year
  Sex: Female
  Weight: 65.31 kg

DRUGS (15)
  1. JAKAFI [Suspect]
     Active Substance: RUXOLITINIB
     Indication: MYELOFIBROSIS
     Dosage: 5 MG, 3AM + 2PM
     Route: 048
     Dates: start: 20130926
  2. JAKAFI [Suspect]
     Active Substance: RUXOLITINIB
     Dosage: NOT SPECIFIED
     Route: 048
     Dates: end: 2014
  3. OMEPRAZOLE. [Concomitant]
     Active Substance: OMEPRAZOLE
  4. NADOLOL. [Concomitant]
     Active Substance: NADOLOL
  5. PROCHLORPERAZINE. [Concomitant]
     Active Substance: PROCHLORPERAZINE
  6. DIPHENOXYLATE [Concomitant]
     Active Substance: DIPHENOXYLATE
  7. STOOL SOFTENER [Concomitant]
     Active Substance: DOCUSATE CALCIUM
  8. EXJADE [Concomitant]
     Active Substance: DEFERASIROX
  9. PREDNISONE. [Concomitant]
     Active Substance: PREDNISONE
  10. FIBERCON [Concomitant]
     Active Substance: CALCIUM POLYCARBOPHIL
  11. HYDROCODONE [Concomitant]
     Active Substance: HYDROCODONE
  12. LEVOTHYROXINE [Concomitant]
     Active Substance: LEVOTHYROXINE
  13. CYANOCOBALAMIN. [Concomitant]
     Active Substance: CYANOCOBALAMIN
  14. FUROSEMIDE. [Concomitant]
     Active Substance: FUROSEMIDE
  15. ZOLPIDEM [Concomitant]
     Active Substance: ZOLPIDEM\ZOLPIDEM TARTRATE

REACTIONS (1)
  - Pyrexia [Recovered/Resolved]

NARRATIVE: CASE EVENT DATE: 20140825
